FAERS Safety Report 18638584 (Version 1)
Quarter: 2020Q4

REPORT INFORMATION
  Report Type: Spontaneous
  Country: US (occurrence: US)
  Receive Date: 20201218
  Receipt Date: 20201218
  Transmission Date: 20210114
  Serious: Yes (Hospitalization)
  Sender: FDA-Public Use
  Company Number: US-ELI_LILLY_AND_COMPANY-US202012003916

PATIENT
  Age: 72 Year
  Sex: Male
  Weight: 81.6 kg

DRUGS (16)
  1. PREDNISONE. [Concomitant]
     Active Substance: PREDNISONE
  2. DEXTROSE IN WATER [Concomitant]
     Active Substance: DEXTROSE\WATER
     Dosage: UNK
     Dates: start: 20201205, end: 20201205
  3. SODIUM BICARBONATE. [Concomitant]
     Active Substance: SODIUM BICARBONATE
  4. NORMAL SALINE [Concomitant]
     Active Substance: SODIUM CHLORIDE
     Dosage: UNK
     Dates: start: 20201204, end: 20201205
  5. BAMLANIVIMAB 700MG [Suspect]
     Active Substance: BAMLANIVIMAB
     Indication: COVID-19
     Dosage: 700 MG, SINGLE
     Route: 042
     Dates: start: 20201204, end: 20201204
  6. MYCOPHENOLATE [Concomitant]
     Active Substance: MYCOPHENOLIC ACID
  7. ZINC. [Concomitant]
     Active Substance: ZINC
     Dosage: UNK
     Dates: start: 20201205, end: 20201205
  8. LEVOTHYROXINE. [Concomitant]
     Active Substance: LEVOTHYROXINE
  9. METOPROLOL TARTRATE. [Concomitant]
     Active Substance: METOPROLOL TARTRATE
  10. TACROLIMUS. [Concomitant]
     Active Substance: TACROLIMUS
  11. WARFARIN [Concomitant]
     Active Substance: WARFARIN
  12. ASPIRIN [ACETYLSALICYLIC ACID] [Concomitant]
     Active Substance: ASPIRIN
  13. CALCIUM CARBONATE. [Concomitant]
     Active Substance: CALCIUM CARBONATE
  14. FUROSEMIDE. [Concomitant]
     Active Substance: FUROSEMIDE
  15. VITAMIN C [Concomitant]
     Active Substance: ASCORBIC ACID
     Dosage: UNK
     Dates: start: 20201205, end: 20201205
  16. DILTIAZEM. [Concomitant]
     Active Substance: DILTIAZEM
     Dosage: UNK
     Dates: start: 20201204, end: 20201205

REACTIONS (4)
  - Atrioventricular block [Unknown]
  - Atrial fibrillation [Recovered/Resolved]
  - Atrial flutter [Recovered/Resolved]
  - Tachycardia [Recovered/Resolved]
